FAERS Safety Report 4652863-2 (Version None)
Quarter: 2005Q2

REPORT INFORMATION
  Report Type: 
  Country: None (occurrence: None)
  Receive Date: 20050502
  Receipt Date: 20050415
  Transmission Date: 20051028
  Serious: Yes (Death, Hospitalization)
  Sender: FDA-Public Use
  Company Number: 10892

PATIENT
  Age: 78 Year
  Sex: Male

DRUGS (4)
  1. FLUOROURACIL [Suspect]
     Indication: COLORECTAL CANCER METASTATIC
  2. LEUCOVORIN CALCIUM [Suspect]
     Indication: COLORECTAL CANCER METASTATIC
  3. PTK787/ZK 222584 VS PLACEBO [Suspect]
     Indication: COLORECTAL CANCER METASTATIC
     Dosage: PO
     Route: 048
     Dates: start: 20040728, end: 20041127
  4. OXALIPLATIN [Concomitant]

REACTIONS (3)
  - ACIDOSIS [None]
  - INTESTINAL ISCHAEMIA [None]
  - RENAL FAILURE ACUTE [None]
